FAERS Safety Report 7398829-3 (Version None)
Quarter: 2011Q2

REPORT INFORMATION
  Report Type: 
  Country: None (occurrence: None)
  Receive Date: 20110404
  Receipt Date: 20110404
  Transmission Date: 20111010
  Serious: Yes (Other)
  Sender: FDA-Public Use
  Company Number: None

PATIENT
  Sex: Female
  Weight: 117.028 kg

DRUGS (1)
  1. DILANTIN [Suspect]
     Indication: EPILEPSY
     Dosage: 700 MG DAILY PO (TAPERING OFF SLOWLY)
     Route: 048
     Dates: start: 19940901

REACTIONS (14)
  - HEPATIC ENZYME INCREASED [None]
  - NIGHT SWEATS [None]
  - HIATUS HERNIA [None]
  - ANGER [None]
  - MENSTRUATION DELAYED [None]
  - DRUG INTERACTION [None]
  - HYPERTENSION [None]
  - DIABETES MELLITUS [None]
  - WEIGHT INCREASED [None]
  - DRUG LEVEL INCREASED [None]
  - AGGRESSION [None]
  - STRESS [None]
  - TOOTHACHE [None]
  - CARDIAC FAILURE CONGESTIVE [None]
